FAERS Safety Report 9504607 (Version 1)
Quarter: 2013Q3

REPORT INFORMATION
  Report Type: Spontaneous
  Country: JP (occurrence: JP)
  Receive Date: 20130906
  Receipt Date: 20130906
  Transmission Date: 20140515
  Serious: Yes (Hospitalization, Other)
  Sender: FDA-Public Use
  Company Number: JP-TAKEDA-2013TUS000113

PATIENT
  Sex: 0

DRUGS (2)
  1. COLCHICINE [Suspect]
     Indication: GOUT
     Dosage: 15 MG, UNK
  2. LOXOPROFEN [Concomitant]

REACTIONS (10)
  - Renal failure acute [Unknown]
  - Delirium [Unknown]
  - Respiratory failure [Unknown]
  - Hypotension [Unknown]
  - Haematemesis [Unknown]
  - Nausea [Unknown]
  - Thrombocytopenia [Unknown]
  - Vomiting [Unknown]
  - Diarrhoea [Unknown]
  - Overdose [Unknown]
